FAERS Safety Report 23800935 (Version 2)
Quarter: 2024Q2

REPORT INFORMATION
  Report Type: Spontaneous
  Country: US (occurrence: US)
  Receive Date: 20240430
  Receipt Date: 20240620
  Transmission Date: 20240716
  Serious: No
  Sender: FDA-Public Use
  Company Number: US-Blueprint Medicines Corporation-3293

PATIENT
  Age: 8 Year
  Sex: Male

DRUGS (2)
  1. AYVAKIT [Suspect]
     Active Substance: AVAPRITINIB
     Indication: Brain neoplasm malignant
     Route: 048
     Dates: start: 20240306
  2. AYVAKIT [Suspect]
     Active Substance: AVAPRITINIB
     Indication: Isovaleric acidaemia
     Route: 065
     Dates: start: 20240306

REACTIONS (3)
  - Pain in extremity [Unknown]
  - Adverse drug reaction [Unknown]
  - Off label use [Unknown]

NARRATIVE: CASE EVENT DATE: 20240306
